FAERS Safety Report 25074341 (Version 2)
Quarter: 2025Q2

REPORT INFORMATION
  Report Type: Spontaneous
  Country: US (occurrence: US)
  Receive Date: 20250313
  Receipt Date: 20250506
  Transmission Date: 20250717
  Serious: Yes (Other)
  Sender: PFIZER
  Company Number: US-PFIZER INC-PV202500029984

PATIENT
  Sex: Female

DRUGS (1)
  1. RUXIENCE [Suspect]
     Active Substance: RITUXIMAB-PVVR

REACTIONS (9)
  - Infusion related reaction [Unknown]
  - Throat tightness [Unknown]
  - Chest discomfort [Unknown]
  - Pruritus [Unknown]
  - Dyspnoea [Unknown]
  - Pallor [Unknown]
  - Tremor [Unknown]
  - Abdominal pain upper [Unknown]
  - Chills [Unknown]
